FAERS Safety Report 17004060 (Version 1)
Quarter: 2019Q4

REPORT INFORMATION
  Report Type: Spontaneous
  Country: GB (occurrence: GB)
  Receive Date: 20191107
  Receipt Date: 20191107
  Transmission Date: 20200122
  Serious: Yes (Other)
  Sender: FDA-Public Use
  Company Number: GB-PERRIGO-19GB013038

PATIENT
  Age: 23 Year
  Sex: Male
  Weight: 87 kg

DRUGS (1)
  1. COLD RELIEF CAPSULES 12063/0003 [Suspect]
     Active Substance: ACETAMINOPHEN\CAFFEINE\PHENYLEPHRINE HYDROCHLORIDE
     Indication: NASOPHARYNGITIS
     Dosage: EVERY 4-6 HOURS
     Route: 048
     Dates: start: 20171204, end: 20171205

REACTIONS (3)
  - Tongue injury [Unknown]
  - Anxiety [Unknown]
  - Seizure [Unknown]

NARRATIVE: CASE EVENT DATE: 20171204
